FAERS Safety Report 23167083 (Version 1)
Quarter: 2023Q4

REPORT INFORMATION
  Report Type: Spontaneous
  Country: CN (occurrence: CN)
  Receive Date: 20231109
  Receipt Date: 20231109
  Transmission Date: 20240110
  Serious: Yes (Hospitalization)
  Sender: FDA-Public Use
  Company Number: CN-PFIZER INC-PV202300181214

PATIENT
  Age: 42 Year
  Sex: Female
  Weight: 72 kg

DRUGS (3)
  1. EPIRUBICIN [Suspect]
     Active Substance: EPIRUBICIN
     Indication: Chemotherapy
     Dosage: 130. MG, 1X/DAY
     Route: 041
     Dates: start: 20230930, end: 20230930
  2. PACLITAXEL [Suspect]
     Active Substance: PACLITAXEL
     Indication: Chemotherapy
     Dosage: 400 MG, 1X/DAY
     Route: 041
     Dates: start: 20230930, end: 20230930
  3. CYCLOPHOSPHAMIDE [Suspect]
     Active Substance: CYCLOPHOSPHAMIDE
     Indication: Chemotherapy
     Dosage: 1 G, 1X/DAY
     Route: 041
     Dates: start: 20230930, end: 20230930

REACTIONS (1)
  - Drug-induced liver injury [Recovering/Resolving]

NARRATIVE: CASE EVENT DATE: 20231020
